FAERS Safety Report 7055309-2 (Version None)
Quarter: 2010Q4

REPORT INFORMATION
  Report Type: 
  Country: None (occurrence: None)
  Receive Date: 20101021
  Receipt Date: 20101012
  Transmission Date: 20110411
  Serious: Yes (Death, Hospitalization)
  Sender: FDA-Public Use
  Company Number: US-AMGEN INC.-KDC375762

PATIENT

DRUGS (5)
  1. ETANERCEPT [Suspect]
     Indication: PSORIASIS
     Dosage: 50 MG, QWK
     Route: 058
     Dates: start: 20060606, end: 20090624
  2. FLUTICASONE/SALMETEROL [Concomitant]
  3. ALBUTEROL INHALER [Concomitant]
     Dosage: UNK UNK, UNK
  4. TRIMETHOPRIM + SULFAMETHOXAZOLE [Concomitant]
     Dosage: UNK UNK, BID
  5. FISH OIL [Concomitant]

REACTIONS (2)
  - PULMONARY EMBOLISM [None]
  - RENAL ANEURYSM [None]
